FAERS Safety Report 4573055-1 (Version None)
Quarter: 2005Q1

REPORT INFORMATION
  Report Type: 
  Country: None (occurrence: None)
  Receive Date: 20050204
  Receipt Date: 20050126
  Transmission Date: 20050727
  Serious: Yes (Hospitalization)
  Sender: FDA-Public Use
  Company Number: 800122

PATIENT
  Age: 61 Year
  Sex: Female
  Weight: 46.1 kg

DRUGS (25)
  1. EXTRANEAL          (EXTRANEAL (ICODEXTRIN 7.5%) [Suspect]
     Indication: PERITONEAL DIALYSIS
     Dosage: 1.5 L; Q; INTRAPERITONEAL
     Route: 033
     Dates: start: 20040411
  2. DIANEAL [Concomitant]
  3. CALCIUM CARBONATE [Concomitant]
  4. EPOGIN [Concomitant]
  5. NIFEDIPINE [Concomitant]
  6. ACECOL [Concomitant]
  7. AMLODIPINE BEISLATE [Concomitant]
  8. NEOMALLERMIN-TR [Concomitant]
  9. MEILAX [Concomitant]
  10. SIMVASTATIN [Concomitant]
  11. LONMIEL [Concomitant]
  12. ASCORBIC ACID/CALCIUM PANTOTHENATE [Concomitant]
  13. MARZULENE [Concomitant]
  14. FLUNITRAZEPAM [Concomitant]
  15. BROTIZOLAM [Concomitant]
  16. CALCIUM CARBONATE [Concomitant]
  17. ALOSENN [Concomitant]
  18. VALSARTAN [Concomitant]
  19. CALCITRIOL [Concomitant]
  20. DOXAZOCIN MESILATE [Concomitant]
  21. NIFEDIPINE [Concomitant]
  22. FAMOTIDINE [Concomitant]
  23. WARFARIN POTASSIUM [Concomitant]
  24. ... [Concomitant]
  25. ............. [Concomitant]

REACTIONS (1)
  - ILEUS PARALYTIC [None]
